FAERS Safety Report 22262004 (Version 6)
Quarter: 2024Q1

REPORT INFORMATION
  Report Type: Report from Study
  Country: US (occurrence: US)
  Receive Date: 20230428
  Receipt Date: 20240129
  Transmission Date: 20240410
  Serious: No
  Sender: FDA-Public Use
  Company Number: US-002147023-NVSC2023US093403

PATIENT
  Age: 39 Year
  Sex: Female
  Weight: 92.971 kg

DRUGS (4)
  1. COSENTYX [Suspect]
     Active Substance: SECUKINUMAB
     Indication: Psoriasis
     Dosage: UNK
     Route: 065
  2. COSENTYX [Suspect]
     Active Substance: SECUKINUMAB
     Dosage: 300 MG, QMO
     Route: 058
     Dates: start: 20230530
  3. TRIAMCINOLONE [Suspect]
     Active Substance: TRIAMCINOLONE
     Indication: Psoriasis
     Dosage: 0.1 %
     Route: 061
  4. CLOBETASOL [Suspect]
     Active Substance: CLOBETASOL
     Indication: Psoriasis
     Dosage: 0.05 % (CREAM AND SHAMPOO)
     Route: 061

REACTIONS (9)
  - Papulopustular rosacea [Unknown]
  - Erythema [Unknown]
  - Guttate psoriasis [Unknown]
  - Psoriasis [Unknown]
  - Rash [Unknown]
  - Product dose omission issue [Unknown]
  - Drug ineffective [Unknown]
  - Product dose omission issue [Unknown]
  - Pruritus [Unknown]

NARRATIVE: CASE EVENT DATE: 20230822
